FAERS Safety Report 23052240 (Version 2)
Quarter: 2023Q4

REPORT INFORMATION
  Report Type: Report from Study
  Country: US (occurrence: US)
  Receive Date: 20231010
  Receipt Date: 20231013
  Transmission Date: 20240109
  Serious: Yes (Hospitalization)
  Sender: FDA-Public Use
  Company Number: US-JNJFOC-20231013041

PATIENT
  Sex: Male
  Weight: 61.29 kg

DRUGS (4)
  1. INFLIXIMAB [Suspect]
     Active Substance: INFLIXIMAB
     Indication: Inflammatory bowel disease
     Route: 041
     Dates: start: 20100914
  2. INFLIXIMAB [Suspect]
     Active Substance: INFLIXIMAB
     Route: 041
     Dates: end: 20130802
  3. STELARA [Concomitant]
     Active Substance: USTEKINUMAB
     Dosage: DATE OF LAST ADMINISTRATION RECORDED WAS 26-JUN-2023
     Route: 058
     Dates: start: 20200721
  4. ENTYVIO [Concomitant]
     Active Substance: VEDOLIZUMAB
     Dosage: DATE OF LAST ADMINISTRATION RECORDED WAS 20-JUN-2023

REACTIONS (2)
  - Crohn^s disease [Recovered/Resolved with Sequelae]
  - Intestinal stenosis [Recovered/Resolved with Sequelae]

NARRATIVE: CASE EVENT DATE: 20230717
